FAERS Safety Report 25913581 (Version 2)
Quarter: 2025Q4

REPORT INFORMATION
  Report Type: Spontaneous
  Country: US (occurrence: US)
  Receive Date: 20251013
  Receipt Date: 20251016
  Transmission Date: 20260117
  Serious: No
  Sender: IDORSIA PHARMACEUTICALS
  Company Number: US-IDORSIA-012041-2025-US

PATIENT
  Age: 68 Year
  Sex: Female

DRUGS (6)
  1. QUVIVIQ [Interacting]
     Active Substance: DARIDOREXANT
     Indication: Insomnia
     Dosage: 50 MG, QD
     Route: 048
     Dates: start: 20251001
  2. ELIQUIS [Interacting]
     Active Substance: APIXABAN
     Indication: Thrombosis
     Dosage: UNK
     Route: 065
  3. MAGNESIUM [Concomitant]
     Active Substance: MAGNESIUM
  4. BISOPROLOL [Concomitant]
     Active Substance: BISOPROLOL
  5. TYLENOL [Concomitant]
     Active Substance: ACETAMINOPHEN
  6. ATORVASTATIN [Concomitant]
     Active Substance: ATORVASTATIN

REACTIONS (4)
  - Blood glucose increased [Recovered/Resolved]
  - Hunger [Recovered/Resolved]
  - Drug ineffective [Not Recovered/Not Resolved]
  - Potentiating drug interaction [Unknown]

NARRATIVE: CASE EVENT DATE: 20251001
